FAERS Safety Report 13929996 (Version 2)
Quarter: 2017Q3

REPORT INFORMATION
  Report Type: Report from Study
  Country: CA (occurrence: CA)
  Receive Date: 20170901
  Receipt Date: 20170905
  Transmission Date: 20171127
  Serious: Yes (Death, Hospitalization)
  Sender: FDA-Public Use
  Company Number: PHHY2017CA128079

PATIENT
  Age: 56 Year
  Sex: Female

DRUGS (1)
  1. REVOLADE [Suspect]
     Active Substance: ELTROMBOPAG
     Indication: IMMUNE THROMBOCYTOPENIC PURPURA
     Dosage: 50 MG, UNK
     Route: 048
     Dates: start: 2011, end: 20111011

REACTIONS (3)
  - Dysgraphia [Unknown]
  - Death [Fatal]
  - Speech disorder [Unknown]

NARRATIVE: CASE EVENT DATE: 20170829
